FAERS Safety Report 19091973 (Version 1)
Quarter: 2021Q2

REPORT INFORMATION
  Report Type: Spontaneous
  Country: US (occurrence: US)
  Receive Date: 20210405
  Receipt Date: 20210405
  Transmission Date: 20210717
  Serious: No
  Sender: FDA-Public Use
  Company Number: US-AMGEN-USASP2021049467

PATIENT
  Age: 74 Year
  Sex: Male

DRUGS (5)
  1. REPATHA [Suspect]
     Active Substance: EVOLOCUMAB
     Indication: CORONARY ARTERY DISEASE
  2. SYNTHROID [Concomitant]
     Active Substance: LEVOTHYROXINE SODIUM
     Dosage: UNK
  3. REPATHA [Suspect]
     Active Substance: EVOLOCUMAB
     Indication: LOW DENSITY LIPOPROTEIN INCREASED
     Dosage: 140 MILLIGRAM, Q2WK
     Route: 065
     Dates: start: 201707
  4. AMLODIPINE [Concomitant]
     Active Substance: AMLODIPINE BESYLATE
     Dosage: UNK
  5. EZETIMIBE. [Concomitant]
     Active Substance: EZETIMIBE
     Indication: LOW DENSITY LIPOPROTEIN INCREASED
     Dosage: UNK

REACTIONS (1)
  - Tendon disorder [Unknown]

NARRATIVE: CASE EVENT DATE: 202009
